FAERS Safety Report 5348994-4 (Version None)
Quarter: 2007Q2

REPORT INFORMATION
  Report Type: 
  Country: None (occurrence: None)
  Receive Date: 20070516
  Receipt Date: 20061226
  Transmission Date: 20071010
  Serious: Yes (Other)
  Sender: FDA-Public Use
  Company Number: WAES 0612USA03700

PATIENT
  Sex: Male

DRUGS (1)
  1. CRIXIVAN [Suspect]
     Dosage: PO
     Route: 048

REACTIONS (3)
  - BLOOD GLUCOSE INCREASED [None]
  - LACTIC ACIDOSIS [None]
  - PANCREATITIS [None]
